FAERS Safety Report 4869175-4 (Version None)
Quarter: 2005Q4

REPORT INFORMATION
  Report Type: 
  Country: None (occurrence: None)
  Receive Date: 20051230
  Receipt Date: 20051219
  Transmission Date: 20060501
  Serious: Yes (Hospitalization)
  Sender: FDA-Public Use
  Company Number: AU-ROCHE-429008

PATIENT
  Age: 84 Year
  Sex: Female

DRUGS (13)
  1. CEFTRIAXONE [Suspect]
     Indication: UPPER RESPIRATORY TRACT INFECTION
     Route: 065
     Dates: start: 20040405, end: 20040407
  2. WARFARIN SODIUM [Interacting]
     Route: 048
  3. ROXITHROMYCIN [Interacting]
     Indication: UPPER RESPIRATORY TRACT INFECTION
     Route: 048
     Dates: start: 20040405, end: 20040414
  4. AUGMENTIN '125' [Interacting]
     Indication: DRUG USE FOR UNKNOWN INDICATION
     Route: 065
     Dates: start: 20040406, end: 20040407
  5. VENTOLIN [Concomitant]
  6. ATROVENT [Concomitant]
  7. PREDNISOLONE [Concomitant]
  8. OMEPRAZOLE [Concomitant]
  9. PERHEXILINE [Concomitant]
  10. POTASSIUM [Concomitant]
  11. FRUSEMIDE [Concomitant]
  12. PERIACTIN [Concomitant]
  13. PROGOUT [Concomitant]

REACTIONS (2)
  - DRUG INTERACTION [None]
  - INTERNATIONAL NORMALISED RATIO INCREASED [None]
